FAERS Safety Report 21238334 (Version 1)
Quarter: 2022Q3

REPORT INFORMATION
  Report Type: Spontaneous
  Country: FR (occurrence: FR)
  Receive Date: 20220822
  Receipt Date: 20220822
  Transmission Date: 20221027
  Serious: Yes (Other)
  Sender: FDA-Public Use
  Company Number: None

PATIENT
  Age: 78 Year
  Sex: Female

DRUGS (3)
  1. JANSSEN COVID-19 VACCINE [Suspect]
     Active Substance: AD26.COV2.S
     Indication: COVID-19 immunisation
     Dosage: UNK
     Route: 030
     Dates: start: 202107, end: 202107
  2. TRAMADOL HYDROCHLORIDE [Suspect]
     Active Substance: TRAMADOL HYDROCHLORIDE
     Indication: Cancer pain
     Dosage: UNK
     Route: 048
  3. FENTANYL [Suspect]
     Active Substance: FENTANYL
     Indication: Cancer pain
     Dosage: 50 MICROGRAM, 1/HR
     Route: 062

REACTIONS (2)
  - Hallucination [Not Recovered/Not Resolved]
  - Confusional state [Not Recovered/Not Resolved]

NARRATIVE: CASE EVENT DATE: 20210923
